FAERS Safety Report 4722062-4 (Version None)
Quarter: 2005Q3

REPORT INFORMATION
  Report Type: 
  Country: None (occurrence: None)
  Receive Date: 20050722
  Receipt Date: 20050713
  Transmission Date: 20060218
  Serious: Yes (Other)
  Sender: FDA-Public Use
  Company Number: US-ROCHE-410958

PATIENT
  Age: 38 Year
  Sex: Male

DRUGS (2)
  1. PEGASYS [Suspect]
     Route: 065
     Dates: start: 20050601, end: 20050715
  2. COPEGUS [Suspect]
     Route: 048
     Dates: start: 20050601, end: 20050715

REACTIONS (2)
  - FACIAL PALSY [None]
  - PARAESTHESIA [None]
